FAERS Safety Report 4648358-2 (Version None)
Quarter: 2005Q2

REPORT INFORMATION
  Report Type: 
  Country: None (occurrence: None)
  Receive Date: 20050429
  Receipt Date: 20050420
  Transmission Date: 20051028
  Serious: Yes (Other)
  Sender: FDA-Public Use
  Company Number: US-JNJFOC-20050306840

PATIENT
  Age: 74 Year
  Sex: Female
  Weight: 53.52 kg

DRUGS (19)
  1. REMICADE [Suspect]
     Route: 042
  2. REMICADE [Suspect]
     Route: 042
  3. REMICADE [Suspect]
     Indication: CROHN'S DISEASE
     Route: 042
  4. ASECOL [Concomitant]
     Indication: CROHN'S DISEASE
  5. ATIVAN [Concomitant]
     Indication: ANXIETY
  6. MULTI-VITAMINS [Concomitant]
  7. MULTI-VITAMINS [Concomitant]
  8. MULTI-VITAMINS [Concomitant]
  9. MULTI-VITAMINS [Concomitant]
  10. MULTI-VITAMINS [Concomitant]
  11. MULTI-VITAMINS [Concomitant]
  12. MULTI-VITAMINS [Concomitant]
  13. MULTI-VITAMINS [Concomitant]
  14. CALCIUM/VITAMIN D [Concomitant]
  15. CALCIUM/VITAMIN D [Concomitant]
  16. CALCIUM/VITAMIN D [Concomitant]
  17. ESTRACE [Concomitant]
  18. CORTICOSTEROIDS [Concomitant]
     Indication: PREMEDICATION
  19. BENADRYL [Concomitant]
     Indication: PREMEDICATION

REACTIONS (5)
  - CYANOSIS [None]
  - DYSPNOEA [None]
  - FAECAL INCONTINENCE [None]
  - HYPERTENSION [None]
  - INFUSION RELATED REACTION [None]
